FAERS Safety Report 6327801-7 (Version None)
Quarter: 2009Q3

REPORT INFORMATION
  Report Type: 
  Country: None (occurrence: None)
  Receive Date: 20090824
  Receipt Date: 20090817
  Transmission Date: 20100115
  Serious: Yes (Death)
  Sender: FDA-Public Use
  Company Number: WAES0908USA02816

PATIENT
  Age: 76 Year
  Sex: Female
  Weight: 90.7194 kg

DRUGS (10)
  1. COZAAR [Suspect]
     Dosage: PO
     Route: 048
  2. ARIMIDEX [Suspect]
     Indication: BREAST CANCER
     Dosage: 1 MG DAILY PO
     Route: 048
     Dates: start: 20060118
  3. NORVASC [Suspect]
  4. TAB GLIBENCLAMIDE UNK [Suspect]
  5. METFORMIN HCL [Suspect]
  6. HYDRODIURIL [Suspect]
  7. ASPIRIN [Suspect]
  8. CALCIUM (UNSPECIFIED) (+) VITAMIN D (UNSPECIFIED) UNK [Suspect]
  9. SYNTHROID [Suspect]
  10. BONIVA [Suspect]

REACTIONS (2)
  - CARDIAC ARREST [None]
  - MYOCARDIAL INFARCTION [None]
